FAERS Safety Report 5185102-7 (Version None)
Quarter: 2006Q4

REPORT INFORMATION
  Report Type: 
  Country: None (occurrence: None)
  Receive Date: 20061220
  Receipt Date: 20060531
  Transmission Date: 20070319
  Serious: No
  Sender: FDA-Public Use
  Company Number: US-GLAXOSMITHKLINE-A0607538A

PATIENT
  Age: 63 Year
  Sex: Female

DRUGS (3)
  1. EQUATE NTS 21MG [Suspect]
     Dates: start: 20060524, end: 20060527
  2. ALTACE [Concomitant]
  3. VIVELLE-DOT [Concomitant]

REACTIONS (7)
  - ABNORMAL DREAMS [None]
  - BLADDER DISORDER [None]
  - HEADACHE [None]
  - HYPERHIDROSIS [None]
  - NIGHT SWEATS [None]
  - POLLAKIURIA [None]
  - URINE OUTPUT DECREASED [None]
